FAERS Safety Report 7673729-X (Version None)
Quarter: 2011Q3

REPORT INFORMATION
  Report Type: 
  Country: None (occurrence: None)
  Receive Date: 20110810
  Receipt Date: 20110728
  Transmission Date: 20111222
  Serious: No
  Sender: FDA-Public Use
  Company Number: US-B.I. PHARMACEUTICALS,INC./RIDGEFIELD-2011-BP-18733BP

PATIENT
  Sex: Female

DRUGS (8)
  1. COREG [Concomitant]
     Indication: ATRIAL FIBRILLATION
     Dosage: 1250 MG
     Route: 048
  2. ISOSORBIDE DINITRATE [Concomitant]
     Indication: HYPERTENSION
     Dosage: 60 MG
     Route: 048
  3. TYLENOL PM [Concomitant]
     Indication: RESTLESSNESS
     Route: 048
  4. LASIX [Concomitant]
     Indication: HYPERTENSION
     Dosage: 40 MG
     Route: 048
  5. SYNTHROID [Concomitant]
     Indication: HYPOTHYROIDISM
     Dosage: 50 MCG
     Route: 048
  6. COREG [Concomitant]
     Indication: HEART RATE IRREGULAR
  7. SPIRONOLACTONE [Concomitant]
     Indication: HYPERTENSION
     Dosage: 25 MG
     Route: 048
  8. PRADAXA [Suspect]
     Indication: ATRIAL FIBRILLATION
     Dosage: 300 MG
     Route: 048
     Dates: start: 20110715

REACTIONS (4)
  - MUSCULOSKELETAL PAIN [None]
  - ERUCTATION [None]
  - ENURESIS [None]
  - DYSPEPSIA [None]
